FAERS Safety Report 12240910 (Version 1)
Quarter: 2016Q2

REPORT INFORMATION
  Report Type: Spontaneous
  Country: US (occurrence: US)
  Receive Date: 20160406
  Receipt Date: 20160406
  Transmission Date: 20160815
  Serious: Yes (Other)
  Sender: FDA-Public Use
  Company Number: US-PFIZER INC-2016180099

PATIENT
  Age: 57 Year
  Sex: Female
  Weight: 95.25 kg

DRUGS (6)
  1. TIZANIDINE. [Suspect]
     Active Substance: TIZANIDINE
     Indication: FIBROMYALGIA
     Dosage: 4 MG, 3X/DAY
     Route: 048
  2. LYRICA [Suspect]
     Active Substance: PREGABALIN
     Indication: BURNING SENSATION
  3. LYRICA [Suspect]
     Active Substance: PREGABALIN
     Indication: ORAL DISCOMFORT
  4. LYRICA [Suspect]
     Active Substance: PREGABALIN
     Indication: PAIN
     Dosage: 75 MG, 4X/DAY
     Dates: start: 201601
  5. NORCO [Suspect]
     Active Substance: ACETAMINOPHEN\HYDROCODONE BITARTRATE
     Dosage: UNK
  6. UNISOM SLEEPTABS [Suspect]
     Active Substance: DOXYLAMINE SUCCINATE
     Indication: INSOMNIA
     Dosage: UNK

REACTIONS (16)
  - Fatigue [Unknown]
  - Skin induration [Unknown]
  - Memory impairment [Unknown]
  - Erythema [Unknown]
  - Face injury [Recovering/Resolving]
  - Dry mouth [Not Recovered/Not Resolved]
  - Pain [Unknown]
  - Fall [Recovering/Resolving]
  - Loss of consciousness [Recovering/Resolving]
  - Confusional state [Recovering/Resolving]
  - Somnolence [Unknown]
  - Skin exfoliation [Unknown]
  - Eye disorder [Not Recovered/Not Resolved]
  - Eye contusion [Unknown]
  - Visual acuity reduced [Unknown]
  - Weight increased [Not Recovered/Not Resolved]

NARRATIVE: CASE EVENT DATE: 2016
